FAERS Safety Report 25586832 (Version 1)
Quarter: 2025Q3

REPORT INFORMATION
  Report Type: Spontaneous
  Country: US (occurrence: US)
  Receive Date: 20250721
  Receipt Date: 20250721
  Transmission Date: 20251020
  Serious: No
  Sender: Phathom Pharmaceuticals
  Company Number: US-PHATHOM PHARMACEUTICALS INC.-2025PHT01530

PATIENT
  Age: 67 Year
  Sex: Female
  Weight: 66.893 kg

DRUGS (3)
  1. VOQUEZNA [Suspect]
     Active Substance: VONOPRAZAN FUMARATE
     Indication: Oesophagitis
     Dosage: 10 MG, 1X/DAY
     Route: 048
     Dates: start: 20250609
  2. VOQUEZNA [Suspect]
     Active Substance: VONOPRAZAN FUMARATE
     Indication: Oesophagitis
     Route: 048
  3. UNSPECIFIED LOW DOSE ARTHRITIS MEDICATION [Concomitant]

REACTIONS (1)
  - Oesophageal pain [Not Recovered/Not Resolved]

NARRATIVE: CASE EVENT DATE: 20250609
